FAERS Safety Report 10798687 (Version 5)
Quarter: 2015Q1

REPORT INFORMATION
  Report Type: Spontaneous
  Country: US (occurrence: US)
  Receive Date: 20150216
  Receipt Date: 20150327
  Transmission Date: 20150721
  Serious: Yes (Hospitalization, Other)
  Sender: FDA-Public Use
  Company Number: US-UNITED THERAPEUTICS-UNT-2015-001570

PATIENT
  Age: 43 Year
  Sex: Female
  Weight: 90.7 kg

DRUGS (5)
  1. TYVASO [Suspect]
     Active Substance: TREPROSTINIL
     Dosage: 18-54 ?G, QID
     Dates: start: 20150116, end: 201503
  2. TORSEMIDE. [Concomitant]
     Active Substance: TORSEMIDE
     Indication: PRODUCT USED FOR UNKNOWN INDICATION
     Dosage: 2 TAB, QD
  3. TRACLEER [Concomitant]
     Active Substance: BOSENTAN\BOSENTAN MONOHYDRATE
     Indication: PRODUCT USED FOR UNKNOWN INDICATION
  4. TYVASO [Suspect]
     Active Substance: TREPROSTINIL
     Indication: PULMONARY ARTERIAL HYPERTENSION
     Dosage: 18-54 ?G, QID
     Dates: start: 20150116, end: 201503
  5. REVATIO [Concomitant]
     Active Substance: SILDENAFIL CITRATE
     Indication: PRODUCT USED FOR UNKNOWN INDICATION

REACTIONS (11)
  - Non-cardiac chest pain [Unknown]
  - Cough [Unknown]
  - Oropharyngeal pain [Unknown]
  - Pulmonary arterial hypertension [Unknown]
  - Localised oedema [Unknown]
  - Oedema [Unknown]
  - Renal failure [Unknown]
  - Face oedema [Unknown]
  - Adverse event [Unknown]
  - Throat irritation [Unknown]
  - Nausea [Unknown]

NARRATIVE: CASE EVENT DATE: 201501
